FAERS Safety Report 24819984 (Version 2)
Quarter: 2025Q1

REPORT INFORMATION
  Report Type: Spontaneous
  Country: US (occurrence: US)
  Receive Date: 20250108
  Receipt Date: 20250319
  Transmission Date: 20250408
  Serious: Yes (Hospitalization, Other)
  Sender: SANDOZ
  Company Number: US-002147023-NVSC2025US001940

PATIENT
  Age: 41 Year
  Sex: Female

DRUGS (3)
  1. COSENTYX [Suspect]
     Active Substance: SECUKINUMAB
     Indication: Psoriatic arthropathy
     Dosage: 150 MILLIGRAM PER MILLILITRE, QMO
     Route: 065
     Dates: start: 202408
  2. METFORMIN [Suspect]
     Active Substance: METFORMIN HYDROCHLORIDE
     Indication: Product used for unknown indication
     Route: 065
  3. DIFLUCAN [Concomitant]
     Active Substance: FLUCONAZOLE
     Indication: Product used for unknown indication
     Route: 065

REACTIONS (15)
  - Dyspepsia [Unknown]
  - Hormone level abnormal [Unknown]
  - Cervical cyst [Unknown]
  - Uterine cyst [Unknown]
  - Renal cyst [Unknown]
  - Haematochezia [Unknown]
  - Malabsorption [Unknown]
  - Colitis ulcerative [Unknown]
  - Cyst [Unknown]
  - Fungal infection [Unknown]
  - Urinary tract infection [Unknown]
  - Muscle spasms [Unknown]
  - Diarrhoea [Unknown]
  - Pruritus [Unknown]
  - Inappropriate schedule of product administration [Unknown]

NARRATIVE: CASE EVENT DATE: 20241101
